FAERS Safety Report 4968142-X (Version None)
Quarter: 2006Q1

REPORT INFORMATION
  Report Type: 
  Country: None (occurrence: None)
  Receive Date: 20060201
  Receipt Date: 20051003
  Transmission Date: 20060701
  Serious: No
  Sender: FDA-Public Use
  Company Number: 2005PV002987

PATIENT
  Age: 59 Year
  Sex: Female
  Weight: 90.2658 kg

DRUGS (9)
  1. BYETTA [Suspect]
     Indication: DIABETES MELLITUS NON-INSULIN-DEPENDENT
     Dosage: 5 MCG; BID; SC
     Route: 058
     Dates: start: 20051001
  2. GLUCOPHAGE [Suspect]
     Indication: DIABETES MELLITUS NON-INSULIN-DEPENDENT
  3. METFORMIN [Concomitant]
  4. AVANDAMET [Concomitant]
  5. ATENOLOL [Concomitant]
  6. ASPIRIN [Concomitant]
  7. LIPITOR [Concomitant]
  8. GLUCOTROL XR [Concomitant]
  9. ZOLOFT [Concomitant]

REACTIONS (1)
  - BLOOD GLUCOSE INCREASED [None]
